FAERS Safety Report 8848138 (Version 1)
Quarter: 2012Q4

REPORT INFORMATION
  Report Type: 
  Country: US (occurrence: US)
  Receive Date: 20121018
  Receipt Date: 20121018
  Transmission Date: 20130627
  Serious: No
  Sender: FDA-Public Use
  Company Number: US-VERTEX PHARMACEUTICAL INC.-2012-022193

PATIENT
  Sex: Male
  Weight: 71 kg

DRUGS (7)
  1. VX-950 [Suspect]
     Indication: HEPATITIS C
     Dosage: 3 DF, tid
     Route: 048
     Dates: start: 20120418
  2. PEGASYS [Concomitant]
     Indication: HEPATITIS C
     Dosage: 180 ?g, UNK
     Route: 058
     Dates: start: 20120418
  3. RIBASPHERE [Concomitant]
     Indication: HEPATITIS C
     Dosage: 200 mg, bid
     Route: 048
     Dates: start: 20120418
  4. PROCRIT                            /00928302/ [Concomitant]
     Indication: ANAEMIA
     Dosage: 40000 ut, UNK
     Route: 058
     Dates: start: 20120418
  5. CLONAZEPAM [Concomitant]
  6. SUBOXONE [Concomitant]
  7. AMLODIPINE [Concomitant]

REACTIONS (5)
  - Off label use [Unknown]
  - Decreased appetite [Unknown]
  - Rash [Unknown]
  - Vomiting [Unknown]
  - Nausea [Unknown]
